FAERS Safety Report 5162845-2 (Version None)
Quarter: 2006Q4

REPORT INFORMATION
  Report Type: 
  Country: None (occurrence: None)
  Receive Date: 20061121
  Receipt Date: 20061116
  Transmission Date: 20070319
  Serious: Yes (Hospitalization, Other)
  Sender: FDA-Public Use
  Company Number: 2006-02079

PATIENT
  Age: 49 Year
  Sex: Female

DRUGS (2)
  1. VELCADE [Suspect]
     Indication: MULTIPLE MYELOMA
     Dates: start: 20060707, end: 20060713
  2. DOXIL [Suspect]
     Indication: MULTIPLE MYELOMA
     Dates: start: 20060710, end: 20060710

REACTIONS (7)
  - ASTHENIA [None]
  - DYSPHONIA [None]
  - GRAND MAL CONVULSION [None]
  - NAUSEA [None]
  - REVERSIBLE POSTERIOR LEUKOENCEPHALOPATHY SYNDROME [None]
  - VISION BLURRED [None]
  - VOMITING [None]
